FAERS Safety Report 12780689 (Version 6)
Quarter: 2017Q1

REPORT INFORMATION
  Report Type: Spontaneous
  Country: US (occurrence: US)
  Receive Date: 20160926
  Receipt Date: 20170221
  Transmission Date: 20170428
  Serious: Yes (Other)
  Sender: FDA-Public Use
  Company Number: US-PFIZER INC-2016431702

PATIENT
  Age: 71 Year
  Sex: Male
  Weight: 62 kg

DRUGS (11)
  1. SUTENT [Suspect]
     Active Substance: SUNITINIB MALATE
     Dosage: 50 MG, DAILY FOR 4 WKS ON 2 WKS OFF
     Route: 048
     Dates: start: 20160915, end: 20160920
  2. TOPROL XL [Concomitant]
     Active Substance: METOPROLOL SUCCINATE
     Dosage: 25 MG, UNK (INCREASE DOSE OF TOPROL TO 25 MG)
  3. LISINOPRIL. [Concomitant]
     Active Substance: LISINOPRIL
     Indication: CARDIOMYOPATHY
     Dosage: 10 MG, 1X/DAY
  4. LIPITOR [Concomitant]
     Active Substance: ATORVASTATIN CALCIUM
     Indication: CARDIOMYOPATHY
     Dosage: 40 MG, 1X/DAY
  5. SUTENT [Suspect]
     Active Substance: SUNITINIB MALATE
     Dosage: 37.5 MG, ONCE DAILY DAY 28 DAYS
     Route: 048
  6. COUMADIN [Concomitant]
     Active Substance: WARFARIN SODIUM
     Dosage: UNK
  7. NORVASC [Concomitant]
     Active Substance: AMLODIPINE BESYLATE
     Indication: HYPERTENSION
  8. SUTENT [Suspect]
     Active Substance: SUNITINIB MALATE
     Indication: METASTATIC RENAL CELL CARCINOMA
     Dosage: 50 MG, DAILY FOR 4 WKS ON 2 WKS OFF
     Route: 048
     Dates: start: 20160805, end: 20160901
  9. SUTENT [Suspect]
     Active Substance: SUNITINIB MALATE
     Dosage: 25 MG, CYCLIC (28 DAYS ON/14 DAYS OFF)
     Dates: start: 20161214
  10. SUTENT [Suspect]
     Active Substance: SUNITINIB MALATE
     Dosage: 50 MG, UNK
     Route: 048
  11. TOPROL XL [Concomitant]
     Active Substance: METOPROLOL SUCCINATE
     Indication: CARDIOMYOPATHY
     Dosage: 12.5 MG, 1X/DAY

REACTIONS (13)
  - International normalised ratio abnormal [Unknown]
  - Thrombocytopenia [Unknown]
  - Epistaxis [Recovered/Resolved]
  - Weight decreased [Not Recovered/Not Resolved]
  - Lethargy [Unknown]
  - Candida infection [Recovered/Resolved]
  - Contusion [Unknown]
  - Decreased appetite [Recovering/Resolving]
  - Palmar-plantar erythrodysaesthesia syndrome [Unknown]
  - Fatigue [Unknown]
  - Dyspnoea [Unknown]
  - Hypertension [Recovered/Resolved]
  - Listless [Unknown]

NARRATIVE: CASE EVENT DATE: 201608
